FAERS Safety Report 6506079-5 (Version None)
Quarter: 2009Q4

REPORT INFORMATION
  Report Type: 
  Country: None (occurrence: None)
  Receive Date: 20091217
  Receipt Date: 20091217
  Transmission Date: 20100525
  Serious: Yes (Other)
  Sender: FDA-Public Use
  Company Number: None

PATIENT
  Age: 55 Year
  Sex: Male
  Weight: 86.1834 kg

DRUGS (2)
  1. TRAZODONE HCL [Suspect]
     Indication: DEPRESSION
     Dosage: 50 MG DAILY
     Dates: start: 20091201, end: 20091215
  2. TRAZODONE HCL [Suspect]
     Indication: INSOMNIA
     Dosage: 50 MG DAILY
     Dates: start: 20091201, end: 20091215

REACTIONS (1)
  - HALLUCINATION [None]
